FAERS Safety Report 7644578-3 (Version None)
Quarter: 2011Q3

REPORT INFORMATION
  Report Type: 
  Country: None (occurrence: None)
  Receive Date: 20110725
  Receipt Date: 20110719
  Transmission Date: 20111222
  Serious: Yes (Hospitalization)
  Sender: FDA-Public Use
  Company Number: LEO-2011-00537

PATIENT
  Sex: Female
  Weight: 84 kg

DRUGS (4)
  1. INNOHEP [Suspect]
     Indication: HAEMODIALYSIS
     Dosage: (2500 IU), HEMODIALYSIS
     Route: 010
     Dates: start: 20110418
  2. ALFACALCIDOL (ALFACALCIDOL) [Concomitant]
  3. VENOFER [Concomitant]
  4. RENAGEL [Concomitant]

REACTIONS (10)
  - HYPOAESTHESIA [None]
  - FLUSHING [None]
  - ANAEMIA OF CHRONIC DISEASE [None]
  - WHITE BLOOD CELL COUNT DECREASED [None]
  - SENSATION OF HEAVINESS [None]
  - PLATELET COUNT DECREASED [None]
  - MALAISE [None]
  - NEUTROPHIL COUNT DECREASED [None]
  - PARAESTHESIA [None]
  - SKIN DISCOLOURATION [None]
